FAERS Safety Report 5484702-4 (Version None)
Quarter: 2007Q4

REPORT INFORMATION
  Report Type: 
  Country: None (occurrence: None)
  Receive Date: 20071012
  Receipt Date: 20071003
  Transmission Date: 20080405
  Serious: Yes (Other)
  Sender: FDA-Public Use
  Company Number: US-PFIZER INC-2007069603

PATIENT
  Sex: Male

DRUGS (2)
  1. NEURONTIN [Suspect]
     Indication: DIABETIC NEUROPATHY
  2. LYRICA [Suspect]
     Indication: DIABETIC NEUROPATHY

REACTIONS (5)
  - CATARACT [None]
  - DRUG INEFFECTIVE [None]
  - EYE HAEMORRHAGE [None]
  - FEELING HOT [None]
  - RETINOPATHY [None]
